FAERS Safety Report 17258595 (Version 3)
Quarter: 2020Q1

REPORT INFORMATION
  Report Type: Report from Study
  Country: CA (occurrence: CA)
  Receive Date: 20200110
  Receipt Date: 20200227
  Transmission Date: 20200409
  Serious: Yes (Hospitalization, Other)
  Sender: FDA-Public Use
  Company Number: CA-GILEAD-2019-0443934

PATIENT
  Age: 28 Year
  Sex: Female
  Weight: 161.84 kg

DRUGS (4)
  1. ZIDOVUDINE. [Concomitant]
     Active Substance: ZIDOVUDINE
  2. BICTEGRAVIR W/EMTRICITABINE/TENOFOVIR ALAFENAMIDE [Suspect]
     Active Substance: BICTEGRAVIR\EMTRICITABINE\TENOFOVIR ALAFENAMIDE
     Indication: HIV INFECTION
     Dosage: UNK
     Route: 065
     Dates: start: 20191219
  3. EMTRICITABINE;TENOFOVIR DISOPROXIL FUMARATE [Suspect]
     Active Substance: EMTRICITABINE\TENOFOVIR DISOPROXIL FUMARATE
     Indication: HIV INFECTION
     Dosage: UNK
     Route: 065
     Dates: start: 20191211, end: 20191218
  4. DOLUTEGRAVIR [Concomitant]
     Active Substance: DOLUTEGRAVIR

REACTIONS (4)
  - Staphylococcal infection [Unknown]
  - Maternal exposure during pregnancy [Recovered/Resolved]
  - Pregnancy [Recovered/Resolved]
  - Endocarditis [Unknown]
